FAERS Safety Report 10271244 (Version 1)
Quarter: 2014Q3

REPORT INFORMATION
  Report Type: Report from Study
  Country: US (occurrence: US)
  Receive Date: 20140701
  Receipt Date: 20140701
  Transmission Date: 20150326
  Serious: Yes (Disabling)
  Sender: FDA-Public Use
  Company Number: US-BRISTOL-MYERS SQUIBB COMPANY-21137674

PATIENT
  Age: 50 Year
  Sex: Female

DRUGS (19)
  1. ACETAMINOPHEN + HYDROCODONE [Concomitant]
     Active Substance: ACETAMINOPHEN\HYDROCODONE
     Dosage: 1DF=5-325MG TABLET
     Dates: start: 20140305
  2. FUROSEMIDE. [Concomitant]
     Active Substance: FUROSEMIDE
     Dosage: TABLET
     Dates: start: 20130726
  3. ESOMEPRAZOLE [Concomitant]
     Active Substance: ESOMEPRAZOLE
     Dosage: CAPSULE
     Dates: start: 20110128
  4. AZELASTINE [Concomitant]
     Active Substance: AZELASTINE
     Dosage: NASAL SPRAY
     Dates: start: 20110104
  5. NICOTINIC ACID [Concomitant]
     Active Substance: NIACIN
     Dates: start: 20140515
  6. MOMETASONE [Concomitant]
     Active Substance: MOMETASONE
     Dosage: NASAL SPRAY
     Dates: start: 20110104
  7. CITALOPRAM [Concomitant]
     Active Substance: CITALOPRAM HYDROBROMIDE
     Dosage: TABLET
     Dates: start: 20120223
  8. IPRATROPIUM + ALBUTEROL [Concomitant]
     Active Substance: ALBUTEROL\IPRATROPIUM
     Dosage: 1DF=20-100MCG INHALER
     Dates: start: 20140103
  9. MAGNESIUM OXIDE. [Concomitant]
     Active Substance: MAGNESIUM OXIDE
     Dosage: TABLET
     Dates: start: 20140304
  10. ALBUTEROL. [Concomitant]
     Active Substance: ALBUTEROL
     Dosage: 1DF=2.5MG/3ML NEBULIZER
     Dates: start: 20140102
  11. TRETINOIN. [Concomitant]
     Active Substance: TRETINOIN
     Dosage: CREAM
     Dates: start: 20121123
  12. LORAZEPAM. [Concomitant]
     Active Substance: LORAZEPAM
     Dosage: TABLET
     Dates: start: 20140130
  13. DIFLUPREDNATE [Concomitant]
     Active Substance: DIFLUPREDNATE
     Dosage: EMULSIFIED EYE DROPS
     Dates: start: 20140422
  14. CETRIZINE [Concomitant]
     Active Substance: CETIRIZINE HYDROCHLORIDE
     Dosage: TABLET
     Dates: start: 20130829
  15. ACYCLOVIR. [Concomitant]
     Active Substance: ACYCLOVIR
     Dosage: TABLET
     Dates: start: 20111109
  16. DASATINIB [Suspect]
     Active Substance: DASATINIB
     Indication: CHRONIC MYELOID LEUKAEMIA
     Dosage: LAST DOSE ON 19-FEB-2014
     Route: 048
     Dates: start: 20110817
  17. HYDROCORTISONE. [Concomitant]
     Active Substance: HYDROCORTISONE
     Dosage: SUPPOSITORY
     Dates: start: 20110928
  18. PROMETHAZINE [Concomitant]
     Active Substance: PROMETHAZINE\PROMETHAZINE HYDROCHLORIDE
     Dosage: 1DF=6.25/5ML SYRUP
     Dates: start: 20130201
  19. ASPIRIN. [Concomitant]
     Active Substance: ASPIRIN
     Dosage: TABLET
     Dates: start: 20110104

REACTIONS (1)
  - Macular oedema [Not Recovered/Not Resolved]

NARRATIVE: CASE EVENT DATE: 20140304
